FAERS Safety Report 9199759 (Version 1)
Quarter: 2013Q1

REPORT INFORMATION
  Report Type: Spontaneous
  Country: US (occurrence: None)
  Receive Date: 20130328
  Receipt Date: 20130328
  Transmission Date: 20140127
  Serious: No
  Sender: FDA-Public Use
  Company Number: None

PATIENT
  Age: 55 Year
  Sex: Female
  Weight: 105.69 kg

DRUGS (1)
  1. LEVOTHYROXINE [Suspect]
     Indication: HYPOTHYROIDISM
     Dosage: 8 MONTH TO LEVOTHYROXINE FROM SYNTHROID DAILY PO
     Route: 048

REACTIONS (1)
  - Therapeutic response unexpected with drug substitution [None]
